FAERS Safety Report 9718185 (Version 1)
Quarter: 2013Q4

REPORT INFORMATION
  Report Type: Spontaneous
  Country: US (occurrence: US)
  Receive Date: 20131125
  Receipt Date: 20131125
  Transmission Date: 20140711
  Serious: No
  Sender: FDA-Public Use
  Company Number: US-VIVUS-2013V1000078

PATIENT
  Sex: Female

DRUGS (5)
  1. QSYMIA 7.5MG/46MG [Suspect]
     Indication: OBESITY
     Dosage: DAILY DOSE: 1 CAPSULE,
     Route: 048
  2. QSYMIA 7.5MG/46MG [Suspect]
     Indication: TYPE 2 DIABETES MELLITUS
  3. QSYMIA 3.75MG/23MG [Suspect]
     Indication: OBESITY
     Dosage: DAILY DOSE: 1 CAPSULE,
     Route: 048
  4. QSYMIA 3.75MG/23MG [Suspect]
     Indication: TYPE 2 DIABETES MELLITUS
  5. ANTIHYPERTENSIVES [Concomitant]
     Indication: BLOOD PRESSURE INCREASED

REACTIONS (5)
  - Hypertension [Not Recovered/Not Resolved]
  - Somnolence [Not Recovered/Not Resolved]
  - Dizziness [Not Recovered/Not Resolved]
  - Hypoaesthesia [Not Recovered/Not Resolved]
  - Paraesthesia [Not Recovered/Not Resolved]
